FAERS Safety Report 8201745-8 (Version None)
Quarter: 2012Q1

REPORT INFORMATION
  Report Type: 
  Country: None (occurrence: None)
  Receive Date: 20120307
  Receipt Date: 20120220
  Transmission Date: 20120608
  Serious: No
  Sender: FDA-Public Use
  Company Number: OPER20120124

PATIENT
  Age: 55 Year
  Sex: Female

DRUGS (3)
  1. OPANA [Suspect]
     Indication: TRIGEMINAL NERVE DISORDER
     Dosage: 10 MG, 1 OR 2 TABLETS DAILY AS NEEDED, ORAL
     Route: 048
     Dates: start: 20120101
  2. OPANA [Suspect]
     Indication: BREAKTHROUGH PAIN
     Dosage: 10 MG, 1 OR 2 TABLETS DAILY AS NEEDED, ORAL
     Route: 048
     Dates: start: 20120101
  3. OPANA ER 5MG (OXYMORPHONE HYDROCHLORIDE) (5 MILLIGRAM, TABLETS) (OXYMO [Concomitant]

REACTIONS (1)
  - NO THERAPEUTIC RESPONSE [None]
